FAERS Safety Report 9051777 (Version 2)
Quarter: 2013Q1

REPORT INFORMATION
  Report Type: Spontaneous
  Country: US (occurrence: US)
  Receive Date: 20130207
  Receipt Date: 20130327
  Transmission Date: 20140127
  Serious: No
  Sender: FDA-Public Use
  Company Number: US-BIOGENIDEC-2013BI009726

PATIENT
  Age: 62 Year
  Sex: Female

DRUGS (1)
  1. AVONEX [Suspect]
     Indication: MULTIPLE SCLEROSIS
     Route: 030
     Dates: start: 20120328

REACTIONS (10)
  - Influenza [Recovered/Resolved]
  - Herpes zoster [Not Recovered/Not Resolved]
  - Immune system disorder [Not Recovered/Not Resolved]
  - Renal disorder [Not Recovered/Not Resolved]
  - Laboratory test abnormal [Unknown]
  - Hepatic enzyme increased [Not Recovered/Not Resolved]
  - Asthenia [Not Recovered/Not Resolved]
  - Musculoskeletal pain [Not Recovered/Not Resolved]
  - Influenza like illness [Recovered/Resolved]
  - Injection site erythema [Not Recovered/Not Resolved]
